FAERS Safety Report 22709411 (Version 5)
Quarter: 2024Q2

REPORT INFORMATION
  Report Type: Spontaneous
  Country: US (occurrence: US)
  Receive Date: 20230717
  Receipt Date: 20240618
  Transmission Date: 20240715
  Serious: Yes (Other)
  Sender: FDA-Public Use
  Company Number: US-SA-SAC20230714000780

PATIENT
  Age: 85 Year
  Sex: Female

DRUGS (2)
  1. KEVZARA [Suspect]
     Active Substance: SARILUMAB
     Indication: Rheumatoid arthritis
     Dosage: 200 MG, QOW
     Route: 058
     Dates: start: 202305
  2. XELJANZ [Suspect]
     Active Substance: TOFACITINIB CITRATE
     Dosage: UNK
     Route: 008
     Dates: end: 20240611

REACTIONS (10)
  - Rheumatoid arthritis [Unknown]
  - Joint swelling [Unknown]
  - Joint stiffness [Unknown]
  - Arthralgia [Unknown]
  - Sluggishness [Unknown]
  - Confusional state [Unknown]
  - Gastroenteritis viral [Unknown]
  - Shoulder operation [Unknown]
  - Drug ineffective [Unknown]
  - Inappropriate schedule of product administration [Unknown]

NARRATIVE: CASE EVENT DATE: 20230101
